FAERS Safety Report 7770147-0 (Version None)
Quarter: 2011Q3

REPORT INFORMATION
  Report Type: 
  Country: None (occurrence: None)
  Receive Date: 20110922
  Receipt Date: 20110224
  Transmission Date: 20111222
  Serious: No
  Sender: FDA-Public Use
  Company Number: US-ASTRAZENECA-2011SE10589

PATIENT
  Age: 27 Year
  Sex: Female
  Weight: 64.9 kg

DRUGS (4)
  1. ADDERALL 5 [Concomitant]
     Indication: ATTENTION DEFICIT/HYPERACTIVITY DISORDER
     Route: 048
  2. SEROQUEL XR [Suspect]
     Indication: DEPRESSION
     Route: 048
     Dates: start: 20101201, end: 20110113
  3. PRILOSEC OTC [Concomitant]
     Indication: GASTROOESOPHAGEAL REFLUX DISEASE
     Dosage: DAILY
     Route: 048
  4. KLONOPIN [Concomitant]
     Indication: SLEEP DISORDER
     Dosage: HS
     Route: 048

REACTIONS (5)
  - ANGER [None]
  - SLEEP DISORDER [None]
  - WEIGHT INCREASED [None]
  - HEADACHE [None]
  - HEART RATE INCREASED [None]
